FAERS Safety Report 16067220 (Version 1)
Quarter: 2019Q1

REPORT INFORMATION
  Report Type: Spontaneous
  Country: US (occurrence: US)
  Receive Date: 20190313
  Receipt Date: 20190313
  Transmission Date: 20190418
  Serious: Yes (Hospitalization, Other)
  Sender: FDA-Public Use
  Company Number: US-BAUSCH-BL-2018-007499

PATIENT
  Age: 44 Year
  Sex: Female

DRUGS (12)
  1. PYRIDOXINE [Concomitant]
     Active Substance: PYRIDOXINE
     Indication: DISSEMINATED TUBERCULOSIS
  2. BACLOFEN. [Concomitant]
     Active Substance: BACLOFEN
     Indication: BONE TUBERCULOSIS
  3. VENLAFAXINE [Interacting]
     Active Substance: VENLAFAXINE HYDROCHLORIDE
     Dosage: EXTENDED RELEASE
     Route: 048
  4. RIFAMPIN. [Interacting]
     Active Substance: RIFAMPIN
     Indication: DISSEMINATED TUBERCULOSIS
     Route: 065
  5. LEVOFLOXACIN. [Interacting]
     Active Substance: LEVOFLOXACIN
     Indication: DISSEMINATED TUBERCULOSIS
     Route: 065
  6. BACLOFEN. [Concomitant]
     Active Substance: BACLOFEN
     Indication: BACK PAIN
  7. GABAPENTIN. [Interacting]
     Active Substance: GABAPENTIN
     Indication: BONE TUBERCULOSIS
  8. GABAPENTIN. [Interacting]
     Active Substance: GABAPENTIN
     Indication: BACK PAIN
  9. TRAMADOL. [Concomitant]
     Active Substance: TRAMADOL
     Indication: BONE TUBERCULOSIS
     Dosage: AS NEEDED
  10. TRAMADOL. [Concomitant]
     Active Substance: TRAMADOL
     Indication: BACK PAIN
  11. VENLAFAXINE [Suspect]
     Active Substance: VENLAFAXINE HYDROCHLORIDE
     Indication: PRODUCT USED FOR UNKNOWN INDICATION
     Dosage: EXTENDED RELEASE
     Route: 048
  12. ISONIAZID. [Interacting]
     Active Substance: ISONIAZID
     Indication: DISSEMINATED TUBERCULOSIS
     Route: 065

REACTIONS (2)
  - Focal dyscognitive seizures [Recovered/Resolved]
  - Drug interaction [Recovered/Resolved]
